FAERS Safety Report 7632776-4 (Version None)
Quarter: 2011Q3

REPORT INFORMATION
  Report Type: 
  Country: None (occurrence: None)
  Receive Date: 20110725
  Receipt Date: 20110110
  Transmission Date: 20111222
  Serious: Yes (Other)
  Sender: FDA-Public Use
  Company Number: US-BRISTOL-MYERS SQUIBB COMPANY-15478704

PATIENT
  Sex: Male

DRUGS (2)
  1. COUMADIN [Suspect]
     Indication: THROMBOSIS
     Dates: start: 20100101
  2. PROCRIT [Concomitant]
     Dosage: INTERRUPTED ON DEC09 RESTARTED ON JUN10
     Route: 058
     Dates: start: 20091001

REACTIONS (1)
  - HAEMOGLOBIN DECREASED [None]
